FAERS Safety Report 22300737 (Version 1)
Quarter: 2023Q2

REPORT INFORMATION
  Report Type: Spontaneous
  Country: US (occurrence: US)
  Receive Date: 20230509
  Receipt Date: 20230509
  Transmission Date: 20230721
  Serious: No
  Sender: FDA-Public Use
  Company Number: US-SANOFI-01596131

PATIENT
  Age: 55 Year
  Sex: Female
  Weight: 82.6 kg

DRUGS (1)
  1. DUPIXENT [Suspect]
     Active Substance: DUPILUMAB
     Indication: Benign familial pemphigus
     Dosage: UNK

REACTIONS (3)
  - Benign familial pemphigus [Unknown]
  - Condition aggravated [Unknown]
  - Off label use [Unknown]
